FAERS Safety Report 5988863-X (Version None)
Quarter: 2008Q4

REPORT INFORMATION
  Report Type: 
  Country: None (occurrence: None)
  Receive Date: 20081210
  Receipt Date: 20080804
  Transmission Date: 20090506
  Serious: Yes (Other)
  Sender: FDA-Public Use
  Company Number: US-AMGEN-STX294761

PATIENT
  Sex: Female
  Weight: 79.5 kg

DRUGS (3)
  1. ENBREL [Suspect]
     Indication: PSORIASIS
     Route: 058
     Dates: start: 20040701, end: 20080708
  2. CLARITIN [Concomitant]
     Route: 065
     Dates: end: 20080101
  3. UNSPECIFIED STEROIDS [Concomitant]
     Route: 061

REACTIONS (1)
  - ANAPLASTIC ASTROCYTOMA [None]
